FAERS Safety Report 23205915 (Version 1)
Quarter: 2023Q4

REPORT INFORMATION
  Report Type: Spontaneous
  Country: FR (occurrence: FR)
  Receive Date: 20231120
  Receipt Date: 20231120
  Transmission Date: 20240109
  Serious: Yes (Hospitalization)
  Sender: FDA-Public Use
  Company Number: None

PATIENT
  Age: 28 Day
  Sex: Male
  Weight: 4.9 kg

DRUGS (2)
  1. NOREPINEPHRINE [Suspect]
     Active Substance: NOREPINEPHRINE
     Indication: Haemodynamic instability
     Dosage: UNK
     Route: 065
     Dates: start: 20230830, end: 20230902
  2. ROPIVACAINE [Suspect]
     Active Substance: ROPIVACAINE
     Indication: Postoperative analgesia
     Dosage: 0.5 MILLIGRAM, QH
     Route: 065
     Dates: start: 20230828, end: 20230829

REACTIONS (2)
  - Skin necrosis [Not Recovered/Not Resolved]
  - Skin discolouration [Not Recovered/Not Resolved]

NARRATIVE: CASE EVENT DATE: 20230830
